FAERS Safety Report 8106090-7 (Version None)
Quarter: 2012Q1

REPORT INFORMATION
  Report Type: 
  Country: None (occurrence: None)
  Receive Date: 20120202
  Receipt Date: 20120126
  Transmission Date: 20120608
  Serious: No
  Sender: FDA-Public Use
  Company Number: US-PFIZER INC-2012021964

PATIENT
  Sex: Male

DRUGS (1)
  1. SUTENT [Suspect]
     Indication: THYMOMA MALIGNANT
     Dosage: UNK

REACTIONS (2)
  - THYMOMA MALIGNANT [None]
  - DISEASE PROGRESSION [None]
